FAERS Safety Report 8166487-6 (Version None)
Quarter: 2012Q1

REPORT INFORMATION
  Report Type: 
  Country: None (occurrence: None)
  Receive Date: 20120227
  Receipt Date: 20110907
  Transmission Date: 20120608
  Serious: No
  Sender: FDA-Public Use
  Company Number: US-MYLANLABS-2011S1019019

PATIENT
  Sex: Female

DRUGS (2)
  1. CLARAVIS [Suspect]
  2. AMNESTEEM [Suspect]

REACTIONS (1)
  - TREATMENT FAILURE [None]
